FAERS Safety Report 12912685 (Version 8)
Quarter: 2020Q3

REPORT INFORMATION
  Report Type: Report from Study
  Country: JP (occurrence: JP)
  Receive Date: 20161104
  Receipt Date: 20171030
  Transmission Date: 20201105
  Serious: Yes (Hospitalization)
  Sender: FDA-Public Use
  Company Number: JP-PFIZER INC-2016433693

PATIENT
  Age: 56 Year
  Sex: Female

DRUGS (63)
  1. MEDI4736 [Suspect]
     Active Substance: DURVALUMAB
     Dosage: 1340 MG, CYCLIC(ONCE EVERY 4 WEEKS)
     Route: 042
     Dates: start: 20160728, end: 20160728
  2. BONALON [Suspect]
     Active Substance: ALENDRONATE SODIUM
     Indication: OSTEOPOROSIS PROPHYLAXIS
     Dosage: 35 MG, WEEKLY
     Route: 048
     Dates: start: 20160920, end: 20161013
  3. MAXIPIME [Concomitant]
     Active Substance: CEFEPIME HYDROCHLORIDE
     Indication: INFECTION PROPHYLAXIS
     Dosage: 1 G, 1X/DAY
     Route: 042
     Dates: start: 20160910, end: 20160910
  4. KCL [Concomitant]
     Active Substance: POTASSIUM CHLORIDE
     Indication: DIARRHOEA
     Dosage: 20 ML, 1X/DAY
     Route: 042
     Dates: start: 20160912, end: 20160915
  5. PREDONINE [Concomitant]
     Active Substance: PREDNISOLONE
     Dosage: 40 MG, 1X/DAY
     Route: 042
     Dates: start: 20160921, end: 20160925
  6. GLYCERIN. [Concomitant]
     Active Substance: GLYCERIN
     Indication: PREMEDICATION
     Dosage: 120.0ML ONCE/SINGLE ADMINISTRATION
     Route: 054
     Dates: start: 20160909, end: 20160909
  7. POSTERISAN FORTE [Concomitant]
     Active Substance: LIDOCAINE
     Indication: PROCTALGIA
     Dosage: 2.0G AS REQUIRED
     Route: 054
     Dates: start: 20160909, end: 20161013
  8. MIYA?BM [Concomitant]
     Active Substance: CLOSTRIDIUM BUTYRICUM SPORES STRAIN M-55
     Dosage: 1 DF, 3X/DAY
     Route: 048
     Dates: start: 20161014, end: 20161022
  9. TREMELIMUMAB. [Suspect]
     Active Substance: TREMELIMUMAB
     Dosage: 67 MG, CYCLIC(ONCE EVERY 4 WEEKS)
     Route: 042
     Dates: start: 20160630, end: 20160630
  10. MEDI4736 [Suspect]
     Active Substance: DURVALUMAB
     Dosage: 1340 MG, CYCLIC(ONCE EVERY 4 WEEKS)
     Route: 042
     Dates: start: 20160630, end: 20160630
  11. MAGNESIUM OXIDE. [Concomitant]
     Active Substance: MAGNESIUM OXIDE
     Indication: CONSTIPATION
     Dosage: 75 MG, 3X/DAY
     Route: 003
     Dates: start: 20160411, end: 20160903
  12. MIRTAZAPINE. [Concomitant]
     Active Substance: MIRTAZAPINE
     Indication: INSOMNIA
     Dosage: 15 MG, 1X/DAY
     Route: 048
     Dates: end: 20161013
  13. KETOPROFEN. [Concomitant]
     Active Substance: KETOPROFEN
     Indication: CANCER PAIN
     Dosage: 30 MG, AS NEEDED
     Route: 003
     Dates: start: 20160601, end: 20161031
  14. PRIMPERAN [Concomitant]
     Active Substance: METOCLOPRAMIDE HYDROCHLORIDE
     Indication: HYPOTHYROIDISM
     Dosage: 5 MG, AS NEEDED
     Route: 048
     Dates: start: 20160825, end: 20161031
  15. PRIMPERAN [Concomitant]
     Active Substance: METOCLOPRAMIDE HYDROCHLORIDE
     Indication: VOMITING
  16. SOLDEM 3A [Concomitant]
     Active Substance: CARBOHYDRATES\POTASSIUM CHLORIDE\SODIUM CHLORIDE\SODIUM LACTATE
     Indication: DIARRHOEA
     Dosage: 500 ML, 1X/DAY
     Route: 042
     Dates: start: 20160910
  17. PREDONINE [Concomitant]
     Active Substance: PREDNISOLONE
     Dosage: 50 MG, 1X/DAY
     Route: 042
     Dates: start: 20160917, end: 20160920
  18. NOVAMIN (PROCHLORPERAZINE MALEATE) [Concomitant]
     Active Substance: PROCHLORPERAZINE MALEATE
     Indication: VOMITING
     Dosage: 5 MG, 3X/DAY
     Route: 048
     Dates: start: 20160907, end: 20160927
  19. AMPHOTERICIN B. [Concomitant]
     Active Substance: AMPHOTERICIN B
     Dosage: 1 ML, 3X/DAY
     Route: 002
     Dates: start: 20160927, end: 20161022
  20. TREMELIMUMAB. [Suspect]
     Active Substance: TREMELIMUMAB
     Indication: NON-SMALL CELL LUNG CANCER
     Dosage: 67 MG, CYCLIC(ONCE EVERY 4 WEEKS)
     Route: 042
     Dates: start: 20160602, end: 20160602
  21. TREMELIMUMAB. [Suspect]
     Active Substance: TREMELIMUMAB
     Dosage: 67 MG, CYCLIC(ONCE EVERY 4 WEEKS)
     Route: 042
     Dates: start: 20160825, end: 20160825
  22. DAIPHEN [Suspect]
     Active Substance: SULFAMETHOXAZOLE\TRIMETHOPRIM
     Indication: PNEUMOCYSTIS JIROVECII PNEUMONIA
     Dosage: 1 DF, 1X/DAY
     Route: 048
     Dates: start: 20160920, end: 20161011
  23. BESOFTEN [Concomitant]
     Active Substance: PENTOSAN POLYSULFATE SODIUM
     Indication: DRY SKIN
     Dosage: 1.0G AS REQUIRED
     Route: 003
     Dates: start: 20160913
  24. CALONAL [Concomitant]
     Active Substance: ACETAMINOPHEN
     Indication: PYREXIA
     Dosage: 400.0MG AS REQUIRED
     Route: 048
     Dates: start: 20160909
  25. BUSCOPAN [Concomitant]
     Active Substance: BUTYLSCOPOLAMINE BROMIDE
     Indication: PREMEDICATION
     Dosage: 20.0MG ONCE/SINGLE ADMINISTRATION
     Route: 030
     Dates: start: 20160909, end: 20160909
  26. LOPERAMIDE [Concomitant]
     Active Substance: LOPERAMIDE
     Indication: DIARRHOEA
     Dosage: 2.0MG AS REQUIRED
     Route: 048
     Dates: start: 20160911, end: 20161013
  27. ISODINE [Concomitant]
     Active Substance: POVIDONE-IODINE
     Indication: OROPHARYNGEAL PAIN
     Dosage: 1.0ML AS REQUIRED
     Route: 002
     Dates: start: 20160917, end: 20161013
  28. KENALOG IN ORABASE [Concomitant]
     Active Substance: TRIAMCINOLONE ACETONIDE
     Indication: STOMATITIS
     Dosage: 1.0G AS REQUIRED
     Route: 002
     Dates: start: 20160920, end: 20161013
  29. THYRADIN?S [Concomitant]
     Active Substance: LEVOTHYROXINE
     Indication: HYPOTHYROIDISM
     Dosage: 25.0UG AS REQUIRED
     Route: 048
     Dates: start: 20161001, end: 20161001
  30. OPSO [Concomitant]
     Active Substance: MORPHINE HYDROCHLORIDE
     Indication: NON-SMALL CELL LUNG CANCER
     Dosage: 15 MG, AS NEEDED
     Route: 048
     Dates: start: 20160503, end: 20161013
  31. ANTEBATE [Concomitant]
     Active Substance: BETAMETHASONE DIPROPIONATE
     Indication: OEDEMA
     Dosage: 1.0G AS REQUIRED
     Route: 003
     Dates: start: 20160926
  32. THYRADIN?S [Concomitant]
     Active Substance: LEVOTHYROXINE
     Dosage: 25.0UG AS REQUIRED
     Route: 048
     Dates: start: 20161003, end: 20161012
  33. MEDI4736 [Suspect]
     Active Substance: DURVALUMAB
     Indication: NON-SMALL CELL LUNG CANCER
     Dosage: 1340 MG, CYCLIC(ONCE EVERY 4 WEEKS)
     Route: 042
     Dates: start: 20160602, end: 20160602
  34. REFLEX [Suspect]
     Active Substance: MIRTAZAPINE
     Indication: INSOMNIA
     Dosage: 15 MG, 1X/DAY
     Route: 048
     Dates: end: 20161013
  35. MS CONTIN [Concomitant]
     Active Substance: MORPHINE SULFATE
     Indication: NON-SMALL CELL LUNG CANCER
     Dosage: 90 MG, 3X/DAY
     Route: 048
     Dates: start: 20160504
  36. SODIUM GUALENATE [Concomitant]
     Active Substance: SODIUM GUALENATE
     Indication: OROPHARYNGEAL PAIN
     Dosage: 2 G, AS NEEDED
     Route: 060
     Dates: end: 20161013
  37. KCL [Concomitant]
     Active Substance: POTASSIUM CHLORIDE
     Dosage: 1 G, 2X/DAY
     Route: 048
     Dates: start: 20160910, end: 20160930
  38. PREDONINE [Concomitant]
     Active Substance: PREDNISOLONE
     Indication: ENTEROCOLITIS
     Dosage: 60 MG, 1X/DAY
     Route: 042
     Dates: start: 20160912, end: 20160916
  39. PREDONINE [Concomitant]
     Active Substance: PREDNISOLONE
     Dosage: 30 MG, 1X/DAY
     Route: 048
     Dates: start: 20160926, end: 20160929
  40. WHITE PETROLATUM [Concomitant]
     Active Substance: PETROLATUM
     Indication: DRY SKIN
     Dosage: 1.0G AS REQUIRED
     Route: 003
     Dates: start: 20160916, end: 20161013
  41. AMPHOTERICIN B. [Concomitant]
     Active Substance: AMPHOTERICIN B
     Indication: ORAL CANDIDIASIS
     Dosage: 1 ML, 3X/DAY
     Route: 002
     Dates: start: 20160920, end: 20160926
  42. MEDI4736 [Suspect]
     Active Substance: DURVALUMAB
     Dosage: 1340 MG, CYCLIC(EVERY 4 WEEKS)
     Route: 042
     Dates: start: 20160825, end: 20160825
  43. LASIX [Suspect]
     Active Substance: FUROSEMIDE
     Indication: OEDEMA
     Dosage: 20 MG, 1X/DAY
     Route: 048
     Dates: start: 20160919, end: 20161013
  44. TRAMAL [Concomitant]
     Active Substance: TRAMADOL
     Indication: NEURALGIA
     Dosage: 200 MG, 4X/DAY
     Route: 048
     Dates: end: 20160907
  45. MEROPENEM. [Concomitant]
     Active Substance: MEROPENEM
     Indication: INFECTION PROPHYLAXIS
     Dosage: 0.5 G, 1X/DAY
     Route: 042
     Dates: start: 20160910, end: 20160910
  46. MEROPENEM. [Concomitant]
     Active Substance: MEROPENEM
     Dosage: 0.5 G, 3X/DAY
     Route: 042
     Dates: start: 20160911, end: 20160913
  47. PREDONINE [Concomitant]
     Active Substance: PREDNISOLONE
     Dosage: 20 MG, 1X/DAY
     Route: 048
     Dates: start: 20160930, end: 20161004
  48. SATO SALBE [Concomitant]
     Indication: OEDEMA
     Dosage: 1.0G AS REQUIRED
     Route: 003
     Dates: start: 20160926
  49. THYRADIN?S [Concomitant]
     Active Substance: LEVOTHYROXINE
     Dosage: 25.0UG AS REQUIRED
     Route: 048
     Dates: start: 20161013
  50. LANSOPRAZOLE. [Suspect]
     Active Substance: LANSOPRAZOLE
     Indication: GASTROOESOPHAGEAL REFLUX DISEASE
     Dosage: 15 MG, 1X/DAY
     Route: 048
     Dates: end: 20161013
  51. SOLDEM 3A [Concomitant]
     Active Substance: CARBOHYDRATES\POTASSIUM CHLORIDE\SODIUM CHLORIDE\SODIUM LACTATE
     Dosage: 200 ML, 1X/DAY
     Route: 042
     Dates: start: 20160911, end: 20160912
  52. SOLDEM 1 [Concomitant]
     Active Substance: DEXTROSE\SODIUM CHLORIDE\SODIUM LACTATE
     Indication: DIARRHOEA
     Dosage: 500 ML, 1X/DAY
     Route: 042
     Dates: start: 20160912
  53. ALBUMIN TANNATE [Concomitant]
     Active Substance: ALBUMIN BOVINE\TANNIC ACID
     Indication: DIARRHOEA
     Dosage: 1 G, 4X/DAY
     Route: 048
     Dates: start: 20160910, end: 20160927
  54. MIYA?BM [Concomitant]
     Active Substance: CLOSTRIDIUM BUTYRICUM SPORES STRAIN M-55
     Indication: ENTEROCOLITIS
     Dosage: 1 DF, 3X/DAY
     Route: 048
     Dates: start: 20160907, end: 20161013
  55. GRAN [Concomitant]
     Active Substance: FILGRASTIM
     Indication: NEUTROPENIA
     Dosage: 75 UG, 1X/DAY
     Route: 057
     Dates: start: 20161014, end: 20161016
  56. TREMELIMUMAB. [Suspect]
     Active Substance: TREMELIMUMAB
     Dosage: 67 MG, CYCLIC(ONCE EVERY 4 WEEKS)
     Route: 042
     Dates: start: 20160728, end: 20160728
  57. LYRICA [Suspect]
     Active Substance: PREGABALIN
     Indication: NEURALGIA
     Dosage: 150 MG, 2X/DAY
     Route: 048
     Dates: end: 20161013
  58. METHYCOBAL [Concomitant]
     Active Substance: METHYLCOBALAMIN
     Indication: NEURALGIA
     Dosage: 1500 UG, 3X/DAY
     Route: 048
  59. LACTEC [Concomitant]
     Active Substance: CALCIUM CHLORIDE ANHYDROUS\POTASSIUM CHLORIDE\SODIUM CHLORIDE\SODIUM LACTATE
     Indication: DIARRHOEA
     Dosage: 500 ML, 1X/DAY
     Route: 042
     Dates: start: 20160911, end: 20160913
  60. PREDONINE [Concomitant]
     Active Substance: PREDNISOLONE
     Dosage: 10 MG, 1X/DAY
     Route: 048
     Dates: start: 20161005, end: 20161011
  61. PREDONINE [Concomitant]
     Active Substance: PREDNISOLONE
     Dosage: 10 MG, 1X/DAY
     Route: 048
     Dates: start: 20161012, end: 20161013
  62. CERCINE [Concomitant]
     Active Substance: DIAZEPAM
     Indication: PREMEDICATION
     Dosage: 10.0MG ONCE/SINGLE ADMINISTRATION
     Route: 042
     Dates: start: 20160909, end: 20160909
  63. FAMOTIDINE. [Concomitant]
     Active Substance: FAMOTIDINE
     Indication: GASTROOESOPHAGEAL REFLUX DISEASE
     Dosage: 10 MG, 2X/DAY
     Route: 048
     Dates: start: 20161014

REACTIONS (3)
  - Oedema peripheral [Recovered/Resolved]
  - Enterocolitis [Recovered/Resolved]
  - Neutropenia [Recovered/Resolved]

NARRATIVE: CASE EVENT DATE: 20160906
